FAERS Safety Report 5649691-8 (Version None)
Quarter: 2008Q1

REPORT INFORMATION
  Report Type: 
  Country: None (occurrence: None)
  Receive Date: 20080304
  Receipt Date: 20080208
  Transmission Date: 20080703
  Serious: No
  Sender: FDA-Public Use
  Company Number: US-BOEHRINGER INGELHEIM GMBH, GERMANY-2008-BP-02127BP

PATIENT
  Sex: Female

DRUGS (4)
  1. COMBIVENT [Suspect]
     Indication: EMPHYSEMA
     Route: 055
     Dates: start: 19960101
  2. ADVAIR DISKUS 100/50 [Concomitant]
     Indication: EMPHYSEMA
  3. SYNTHROID [Concomitant]
     Indication: HYPOTHYROIDISM
  4. EYE DROPS [Concomitant]
     Indication: GLAUCOMA
     Route: 031

REACTIONS (1)
  - DRUG INEFFECTIVE [None]
